FAERS Safety Report 4905878-0 (Version None)
Quarter: 2006Q1

REPORT INFORMATION
  Report Type: 
  Country: None (occurrence: None)
  Receive Date: 20060203
  Receipt Date: 20060128
  Transmission Date: 20060701
  Serious: Yes (Death, Hospitalization)
  Sender: FDA-Public Use
  Company Number: ENTC2005-0313

PATIENT
  Age: 59 Year
  Sex: Female
  Weight: 49.1 kg

DRUGS (2)
  1. STALEVO 100 [Suspect]
     Indication: PARKINSON'S DISEASE
     Dosage: 300 MG, 3 IN 1 D, ORAL
     Route: 048
     Dates: start: 20050707, end: 20051221
  2. DARVOCET-N 50 [Suspect]
     Dates: start: 20050925

REACTIONS (5)
  - LUNG NEOPLASM MALIGNANT [None]
  - METASTASES TO PLEURA [None]
  - METASTASES TO THE MEDIASTINUM [None]
  - NODULE [None]
  - PLEURAL EFFUSION [None]
